FAERS Safety Report 20807230 (Version 1)
Quarter: 2022Q2

REPORT INFORMATION
  Report Type: Spontaneous
  Country: IL (occurrence: IL)
  Receive Date: 20220510
  Receipt Date: 20220510
  Transmission Date: 20220721
  Serious: Yes (Other)
  Sender: FDA-Public Use
  Company Number: IL-AMGEN-ISRSP2022079457

PATIENT

DRUGS (3)
  1. LUMAKRAS [Suspect]
     Active Substance: SOTORASIB
     Indication: Non-small cell lung cancer metastatic
     Dosage: UNK
     Route: 065
  2. LUMAKRAS [Suspect]
     Active Substance: SOTORASIB
     Indication: Off label use
  3. AVASTIN [Concomitant]
     Active Substance: BEVACIZUMAB
     Dosage: UNK

REACTIONS (2)
  - Terminal state [Unknown]
  - Off label use [Unknown]
